FAERS Safety Report 5210814-6 (Version None)
Quarter: 2006Q4

REPORT INFORMATION
  Report Type: 
  Country: None (occurrence: None)
  Receive Date: 20061101
  Receipt Date: 20060725
  Transmission Date: 20070319
  Serious: No
  Sender: FDA-Public Use
  Company Number: 2006PV018223

PATIENT
  Age: 63 Year
  Sex: Female
  Weight: 54.8852 kg

DRUGS (4)
  1. SYMLIN [Suspect]
     Indication: DIABETES MELLITUS INSULIN-DEPENDENT
     Dosage: 15 MCG;TID;SC
     Route: 058
     Dates: start: 20060626
  2. HUMALOG [Concomitant]
  3. LANTUS [Concomitant]
  4. NEXIUM [Concomitant]

REACTIONS (1)
  - BLOOD GLUCOSE FLUCTUATION [None]
